FAERS Safety Report 18749860 (Version 2)
Quarter: 2021Q1

REPORT INFORMATION
  Report Type: Spontaneous
  Country: US (occurrence: US)
  Receive Date: 20210117
  Receipt Date: 20210119
  Transmission Date: 20210419
  Serious: Yes (Hospitalization)
  Sender: FDA-Public Use
  Company Number: US-ROCHE-2750362

PATIENT
  Sex: Female

DRUGS (2)
  1. APAP;OXYCODONE [Concomitant]
  2. ACTEMRA [Suspect]
     Active Substance: TOCILIZUMAB
     Indication: RHEUMATOID ARTHRITIS
     Dosage: 162 MG/ML
     Route: 058
     Dates: start: 20180714

REACTIONS (1)
  - Gastrointestinal obstruction [Unknown]
